FAERS Safety Report 5591166-9 (Version None)
Quarter: 2008Q1

REPORT INFORMATION
  Report Type: 
  Country: None (occurrence: None)
  Receive Date: 20080115
  Receipt Date: 20080107
  Transmission Date: 20080703
  Serious: Yes (Hospitalization, Other)
  Sender: FDA-Public Use
  Company Number: US-ROCHE-495934

PATIENT
  Age: 35 Year
  Sex: Female
  Weight: 87.1 kg

DRUGS (2)
  1. ACCUTANE [Suspect]
     Route: 048
     Dates: start: 20040801, end: 20050101
  2. IBUPROFEN [Concomitant]
     Route: 048
     Dates: start: 20050101

REACTIONS (32)
  - ANXIETY [None]
  - ARTHRITIS [None]
  - ASTHMA [None]
  - BIPOLAR DISORDER [None]
  - CARDIAC DISORDER [None]
  - DEPRESSION [None]
  - DIZZINESS [None]
  - GALLBLADDER DISORDER [None]
  - GASTRITIS [None]
  - GASTROENTERITIS [None]
  - GASTROINTESTINAL DISORDER [None]
  - GOUT [None]
  - HEADACHE [None]
  - HEPATIC CONGESTION [None]
  - HEPATIC ENZYME INCREASED [None]
  - HEPATOMEGALY [None]
  - HYDRONEPHROSIS [None]
  - LIVER DISORDER [None]
  - LYMPHADENOPATHY [None]
  - MITRAL VALVE INCOMPETENCE [None]
  - MITRAL VALVE PROLAPSE [None]
  - NIGHT BLINDNESS [None]
  - PANIC ATTACK [None]
  - PULMONARY VALVE INCOMPETENCE [None]
  - RENAL DISORDER [None]
  - RENAL LIPOMATOSIS [None]
  - SINUS BRADYCARDIA [None]
  - SPLENOMEGALY [None]
  - TRICUSPID VALVE INCOMPETENCE [None]
  - TRIGEMINAL NEURALGIA [None]
  - VENTRICULAR EXTRASYSTOLES [None]
  - VENTRICULAR HYPERTROPHY [None]
